FAERS Safety Report 20303704 (Version 3)
Quarter: 2025Q4

REPORT INFORMATION
  Report Type: Report from Study
  Country: CA (occurrence: CA)
  Receive Date: 20220106
  Receipt Date: 20251201
  Transmission Date: 20260118
  Serious: Yes (Other)
  Sender: ROCHE
  Company Number: CA-002147023-PHHY2017CA181320

PATIENT
  Age: 60 Year
  Sex: Female

DRUGS (24)
  1. XOLAIR [Suspect]
     Active Substance: OMALIZUMAB
     Indication: Chronic spontaneous urticaria
     Route: 058
     Dates: start: 20171129
  2. XOLAIR [Suspect]
     Active Substance: OMALIZUMAB
     Dosage: UNK
     Route: 058
     Dates: start: 20171228
  3. XOLAIR [Suspect]
     Active Substance: OMALIZUMAB
     Dosage: UNK
     Route: 058
     Dates: start: 20180124
  4. XOLAIR [Suspect]
     Active Substance: OMALIZUMAB
     Dosage: 300 MG, EVERY4 WEEKS
     Route: 058
     Dates: start: 20180321
  5. XOLAIR [Suspect]
     Active Substance: OMALIZUMAB
     Dosage: 300 MG, EVERY4 WEEKS
     Route: 058
     Dates: start: 20180321
  6. XOLAIR [Suspect]
     Active Substance: OMALIZUMAB
     Dosage: 300 MG, EVERY 4 WEEKS
     Route: 058
     Dates: start: 20180419
  7. XOLAIR [Suspect]
     Active Substance: OMALIZUMAB
     Dosage: 300 MG, EVERY 4 WEEKS
     Route: 058
     Dates: start: 20180615
  8. XOLAIR [Suspect]
     Active Substance: OMALIZUMAB
     Dosage: 300 MG, EVERY 4 WEEKS
     Route: 058
     Dates: start: 20180820
  9. XOLAIR [Suspect]
     Active Substance: OMALIZUMAB
     Dosage: 300 MG, EVERY 4 WEEKS
     Route: 058
     Dates: start: 20181015
  10. XOLAIR [Suspect]
     Active Substance: OMALIZUMAB
     Dosage: 300 MG, EVERY 4 WEEKS
     Route: 058
     Dates: start: 20181220
  11. XOLAIR [Suspect]
     Active Substance: OMALIZUMAB
     Dosage: 300 MG, EVERY 4 WEEKS
     Route: 058
     Dates: start: 20190207
  12. XOLAIR [Suspect]
     Active Substance: OMALIZUMAB
     Dosage: 300 MG, EVERY 4 WEEKS
     Route: 058
  13. XOLAIR [Suspect]
     Active Substance: OMALIZUMAB
     Dosage: UNK
     Route: 065
     Dates: start: 20210510
  14. XOLAIR [Suspect]
     Active Substance: OMALIZUMAB
     Dosage: 300 MG, EVERY 4 WEEKS
     Route: 058
  15. XOLAIR [Suspect]
     Active Substance: OMALIZUMAB
     Dosage: 300 MG, EVERY 4 WEEKS
     Route: 058
  16. XOLAIR [Suspect]
     Active Substance: OMALIZUMAB
     Dosage: 300 MG, EVERY 4 WEEKS
     Route: 058
  17. XOLAIR [Suspect]
     Active Substance: OMALIZUMAB
     Dosage: 300 MG, UNKNOWN(EVERY 4 WEEKS)
     Route: 058
  18. MORPHINE [Suspect]
     Active Substance: MORPHINE
     Indication: Product used for unknown indication
     Route: 065
  19. ZANTAC [Concomitant]
     Active Substance: RANITIDINE HYDROCHLORIDE
     Indication: Product used for unknown indication
     Route: 065
     Dates: start: 2004
  20. ATENOLOL [Concomitant]
     Active Substance: ATENOLOL
     Indication: Migraine
     Route: 065
  21. ATENOLOL [Concomitant]
     Active Substance: ATENOLOL
     Indication: Chronic spontaneous urticaria
     Dosage: 1 DOSAGE FORM
     Route: 065
  22. PLAVIX [Concomitant]
     Active Substance: CLOPIDOGREL BISULFATE
     Indication: Product used for unknown indication
  23. CETIRIZINE HYDROCHLORIDE [Concomitant]
     Active Substance: CETIRIZINE HYDROCHLORIDE
     Indication: Product used for unknown indication
     Dates: start: 2004
  24. AMITRIPTYLINE [Concomitant]
     Active Substance: AMITRIPTYLINE
     Indication: Product used for unknown indication
     Dosage: UNK

REACTIONS (36)
  - Peripheral artery occlusion [Unknown]
  - Blood pressure systolic increased [Recovering/Resolving]
  - Influenza [Not Recovered/Not Resolved]
  - Pyrexia [Unknown]
  - Blood potassium increased [Recovering/Resolving]
  - Hypertension [Unknown]
  - Migraine with aura [Unknown]
  - Bronchitis [Unknown]
  - Vertigo [Unknown]
  - Balance disorder [Unknown]
  - Sluggishness [Unknown]
  - Muscle spasms [Unknown]
  - Peripheral vascular disorder [Unknown]
  - Intermittent claudication [Unknown]
  - Peripheral swelling [Unknown]
  - Skin ulcer [Unknown]
  - Headache [Unknown]
  - Pruritus [Not Recovered/Not Resolved]
  - Diarrhoea [Unknown]
  - Urinary tract infection [Unknown]
  - Urticaria [Recovered/Resolved]
  - Therapeutic response shortened [Unknown]
  - Chronic spontaneous urticaria [Unknown]
  - Scab [Unknown]
  - Insomnia [Unknown]
  - Abdominal pain lower [Unknown]
  - Pain in extremity [Unknown]
  - Drug hypersensitivity [Unknown]
  - Product dose omission issue [Unknown]
  - Thrombosis [Unknown]
  - Illness [Unknown]
  - Movement disorder [Unknown]
  - Dermatitis contact [Unknown]
  - Temperature intolerance [Unknown]
  - Sinusitis [Recovered/Resolved]
  - Drug ineffective [Unknown]

NARRATIVE: CASE EVENT DATE: 20171129
